FAERS Safety Report 25376922 (Version 1)
Quarter: 2025Q2

REPORT INFORMATION
  Report Type: Spontaneous
  Country: US (occurrence: US)
  Receive Date: 20250530
  Receipt Date: 20250530
  Transmission Date: 20250717
  Serious: No
  Sender: CIPLA
  Company Number: US-CIPLA LTD.-2024US09276

PATIENT

DRUGS (6)
  1. ALBUTEROL [Suspect]
     Active Substance: ALBUTEROL
     Indication: Asthma
     Dosage: 180 MICROGRAM, TID (6 PUFFS IN A DAY (2 PUFFS IN MORNING, 2 PUFFS IN LUNCH AND 2 PUFFS IN THE EVENIN
     Dates: start: 2022
  2. ALBUTEROL [Suspect]
     Active Substance: ALBUTEROL
     Indication: Hypersensitivity
     Dosage: 180 MICROGRAM (2 PUFFS), TID (ONCE IN MORNING, LUNCH AND EVENING)
  3. ADVAIR HFA [Concomitant]
     Active Substance: FLUTICASONE PROPIONATE\SALMETEROL XINAFOATE
     Indication: Asthma
     Dosage: UNK, BID (1 PUFF 2 TIMES A DAY)
     Route: 065
     Dates: start: 2022
  4. ADVAIR HFA [Concomitant]
     Active Substance: FLUTICASONE PROPIONATE\SALMETEROL XINAFOATE
     Indication: Hypersensitivity
  5. RYALTRIS [Concomitant]
     Active Substance: MOMETASONE FUROATE MONOHYDRATE\OLOPATADINE HYDROCHLORIDE
     Indication: Asthma
     Dosage: UNK, BID (2 PUFFS IN RIGHT AND LEFT NOSTRIL)
     Route: 045
     Dates: start: 2023
  6. RYALTRIS [Concomitant]
     Active Substance: MOMETASONE FUROATE MONOHYDRATE\OLOPATADINE HYDROCHLORIDE
     Indication: Hypersensitivity

REACTIONS (4)
  - Drug dose omission by device [Unknown]
  - Device delivery system issue [Unknown]
  - Product quality issue [Unknown]
  - Device mechanical issue [Unknown]

NARRATIVE: CASE EVENT DATE: 20240701
